FAERS Safety Report 11321259 (Version 2)
Quarter: 2015Q4

REPORT INFORMATION
  Report Type: Spontaneous
  Country: US (occurrence: US)
  Receive Date: 20150729
  Receipt Date: 20151105
  Transmission Date: 20160304
  Serious: Yes (Other)
  Sender: FDA-Public Use
  Company Number: US-BAYER-2015-383582

PATIENT
  Age: 25 Year
  Sex: Female

DRUGS (4)
  1. MIRENA [Suspect]
     Active Substance: LEVONORGESTREL
     Indication: CONTRACEPTION
     Dosage: 20 MCG/24HR, CONT
     Route: 015
     Dates: start: 20150720
  2. MOTRIN [Concomitant]
     Active Substance: IBUPROFEN
  3. CYTOTEC [Concomitant]
     Active Substance: MISOPROSTOL
     Indication: UTERINE CERVIX DILATION PROCEDURE
  4. XYLOCAINE [Concomitant]
     Active Substance: LIDOCAINE HYDROCHLORIDE

REACTIONS (3)
  - Pruritus [None]
  - Anaphylactic reaction [None]
  - Choking sensation [None]

NARRATIVE: CASE EVENT DATE: 20150720
